FAERS Safety Report 14825860 (Version 2)
Quarter: 2018Q2

REPORT INFORMATION
  Report Type: Spontaneous
  Country: US (occurrence: US)
  Receive Date: 20180430
  Receipt Date: 20180518
  Transmission Date: 20180711
  Serious: No
  Sender: FDA-Public Use
  Company Number: US-PFIZER INC-2018171005

PATIENT
  Age: 17 Year
  Sex: Female

DRUGS (4)
  1. WATER BACTERIOSTATIC [Suspect]
     Active Substance: WATER
     Dosage: 1 ML, UNK (1 ML 4-6 X A DAY FOR 2 MONTHS)
     Dates: start: 201801, end: 201802
  2. MAXALT [Concomitant]
     Active Substance: RIZATRIPTAN BENZOATE
     Dosage: 10 MG, AS NEEDED (AS NEEDED 1-2 X A DAY)
     Dates: start: 201701
  3. TOPAMAX [Concomitant]
     Active Substance: TOPIRAMATE
     Dosage: 150 MG, UNK
     Dates: start: 201701
  4. WATER BACTERIOSTATIC [Suspect]
     Active Substance: WATER
     Dosage: UNK

REACTIONS (1)
  - Injection site pain [Recovered/Resolved]

NARRATIVE: CASE EVENT DATE: 20180108
